FAERS Safety Report 19765003 (Version 8)
Quarter: 2025Q1

REPORT INFORMATION
  Report Type: Report from Study
  Country: DE (occurrence: DE)
  Receive Date: 20210830
  Receipt Date: 20250225
  Transmission Date: 20250408
  Serious: Yes (Other)
  Sender: PFIZER
  Company Number: DE-ROCHE-2331979

PATIENT
  Age: 44 Year
  Sex: Female

DRUGS (15)
  1. COMIRNATY (TOZINAMERAN) [Suspect]
     Active Substance: TOZINAMERAN
     Indication: COVID-19 immunisation
     Route: 065
     Dates: start: 202104, end: 202104
  2. MABTHERA [Suspect]
     Active Substance: RITUXIMAB
     Indication: Relapsing-remitting multiple sclerosis
     Route: 042
     Dates: start: 20190510
  3. MABTHERA [Suspect]
     Active Substance: RITUXIMAB
     Route: 042
     Dates: start: 202012
  4. MABTHERA [Suspect]
     Active Substance: RITUXIMAB
     Route: 042
     Dates: start: 202106
  5. MABTHERA [Suspect]
     Active Substance: RITUXIMAB
     Route: 042
     Dates: start: 202205, end: 202309
  6. METOPROLOL SUCCINATE [Concomitant]
     Active Substance: METOPROLOL SUCCINATE
  7. ESCITALOPRAM [Concomitant]
     Active Substance: ESCITALOPRAM OXALATE
  8. DESLORATADINE [Concomitant]
     Active Substance: DESLORATADINE
  9. VALDOXAN [Concomitant]
     Active Substance: AGOMELATINE
  10. CAFFEINE [Concomitant]
     Active Substance: CAFFEINE
  11. VITAMIN D3 [Concomitant]
     Active Substance: CHOLECALCIFEROL
  12. VENLAFAXINE [Concomitant]
     Active Substance: VENLAFAXINE HYDROCHLORIDE
  13. MELATONIN [Concomitant]
     Active Substance: MELATONIN
  14. BUTYLSCOPOLAMINE BROMIDE [Concomitant]
     Active Substance: BUTYLSCOPOLAMINE BROMIDE
  15. METOPROLOL [Concomitant]
     Active Substance: METOPROLOL

REACTIONS (3)
  - Immunodeficiency [Not Recovered/Not Resolved]
  - Headache [Recovered/Resolved]
  - Pain in extremity [Recovered/Resolved]

NARRATIVE: CASE EVENT DATE: 20210401
